FAERS Safety Report 8581598-9 (Version None)
Quarter: 2012Q3

REPORT INFORMATION
  Report Type: 
  Country: None (occurrence: None)
  Receive Date: 20120809
  Receipt Date: 20120801
  Transmission Date: 20120928
  Serious: Yes (Hospitalization)
  Sender: FDA-Public Use
  Company Number: US-ASTELLAS-2012US006695

PATIENT
  Sex: Female

DRUGS (4)
  1. MAGNESIUM [Concomitant]
     Indication: VITAMIN SUPPLEMENTATION
     Dosage: 1 DF, UID/QD
     Route: 048
  2. SULFAMETHOXAZOLE AND TRIMETHOPRIM [Concomitant]
     Indication: KIDNEY INFECTION
     Dosage: 1 DF, Q12 HOURS
     Route: 048
     Dates: start: 20120801
  3. CALTRATE + D                       /00944201/ [Concomitant]
     Indication: VITAMIN SUPPLEMENTATION
     Dosage: SOFT CHEW
     Route: 048
  4. VESICARE [Suspect]
     Indication: URGE INCONTINENCE
     Dosage: 5 MG, UID/QD
     Route: 048

REACTIONS (3)
  - DIARRHOEA [None]
  - KIDNEY INFECTION [None]
  - DEHYDRATION [None]
